FAERS Safety Report 10587472 (Version 1)
Quarter: 2014Q4

REPORT INFORMATION
  Report Type: Spontaneous
  Country: US (occurrence: US)
  Receive Date: 20141117
  Receipt Date: 20141117
  Transmission Date: 20150529
  Serious: No
  Sender: FDA-Public Use
  Company Number: US-PFIZER INC-2014315438

PATIENT

DRUGS (1)
  1. CELEBREX [Suspect]
     Active Substance: CELECOXIB
     Dosage: 40 MG, UNK

REACTIONS (4)
  - Skin disorder [Unknown]
  - Scab [Unknown]
  - Scar [Unknown]
  - Pruritus [Unknown]
